FAERS Safety Report 7923147-1 (Version None)
Quarter: 2011Q4

REPORT INFORMATION
  Report Type: 
  Country: None (occurrence: None)
  Receive Date: 20111117
  Receipt Date: 20110131
  Transmission Date: 20120403
  Serious: No
  Sender: FDA-Public Use
  Company Number: US-AMGEN-USASP2011005731

PATIENT
  Age: 26 Year
  Sex: Male

DRUGS (2)
  1. METHOTREXATE [Concomitant]
     Dosage: 1 MG, QWK
     Dates: start: 20100128
  2. ENBREL [Suspect]
     Indication: RHEUMATOID ARTHRITIS
     Dosage: 50 MG, QWK
     Dates: start: 20101224

REACTIONS (6)
  - ARTHRALGIA [None]
  - COLD SWEAT [None]
  - PAIN IN EXTREMITY [None]
  - DRUG EFFECT DECREASED [None]
  - FEELING ABNORMAL [None]
  - HYPERHIDROSIS [None]
